FAERS Safety Report 12470033 (Version 1)
Quarter: 2016Q2

REPORT INFORMATION
  Report Type: Report from Study
  Country: US (occurrence: US)
  Receive Date: 20160616
  Receipt Date: 20160616
  Transmission Date: 20160815
  Serious: No
  Sender: FDA-Public Use
  Company Number: US-AMGEN-USASL2016074369

PATIENT
  Age: 62 Year
  Sex: Female

DRUGS (2)
  1. ENBREL [Suspect]
     Active Substance: ETANERCEPT
     Indication: RHEUMATOID ARTHRITIS
     Dosage: UNK, QWK
     Route: 065
  2. LEXAPRO [Concomitant]
     Active Substance: ESCITALOPRAM OXALATE
     Dosage: UNK

REACTIONS (10)
  - Pain [Unknown]
  - Feeling abnormal [Unknown]
  - Influenza [Unknown]
  - Injection site pain [Unknown]
  - Chondropathy [Unknown]
  - Irritable bowel syndrome [Unknown]
  - Injection site reaction [Unknown]
  - Abdominal pain upper [Unknown]
  - Restless legs syndrome [Unknown]
  - Injection site erythema [Unknown]

NARRATIVE: CASE EVENT DATE: 20160608
